FAERS Safety Report 23447666 (Version 3)
Quarter: 2024Q1

REPORT INFORMATION
  Report Type: Spontaneous
  Country: PT (occurrence: PT)
  Receive Date: 20240126
  Receipt Date: 20240226
  Transmission Date: 20240410
  Serious: Yes (Hospitalization)
  Sender: FDA-Public Use
  Company Number: PT-ROCHE-2468178

PATIENT
  Age: 43 Year
  Sex: Female

DRUGS (33)
  1. LAPATINIB [Suspect]
     Active Substance: LAPATINIB
     Indication: HER2 positive breast cancer
     Dosage: 1250 MG, QD
     Route: 048
     Dates: start: 20190316
  2. CAPECITABINE [Suspect]
     Active Substance: CAPECITABINE
     Indication: HER2 positive breast cancer
     Dosage: 1170 MG (0.5 DAY)
     Route: 048
     Dates: start: 20190226
  3. CAPECITABINE [Suspect]
     Active Substance: CAPECITABINE
     Dosage: 50 MG, QID
     Route: 048
     Dates: start: 20190226
  4. TYKERB [Suspect]
     Active Substance: LAPATINIB DITOSYLATE
     Indication: HER2 positive breast cancer
     Dosage: 1250 MG, QD
     Route: 048
     Dates: start: 20190316
  5. VINORELBINE [Suspect]
     Active Substance: VINORELBINE TARTRATE
     Indication: HER2 positive breast cancer
     Dosage: 600 MG/KG, Q3W
     Route: 042
     Dates: start: 20180918, end: 20181130
  6. PERJETA [Suspect]
     Active Substance: PERTUZUMAB
     Indication: HER2 positive breast cancer
     Dosage: MOST RECENT DOSE OF PERTUZUMAB: 30/NOV/2018
     Route: 042
     Dates: start: 20180918, end: 20181130
  7. PERJETA [Suspect]
     Active Substance: PERTUZUMAB
     Indication: HER2 positive breast cancer
  8. PERTUZUMAB [Suspect]
     Active Substance: PERTUZUMAB
     Indication: HER2 positive breast cancer
     Dosage: MOST RECENT DOSE OF PERTUZUMAB: 30/NOV/2018
     Route: 042
     Dates: start: 20180918, end: 20181130
  9. ADO-TRASTUZUMAB EMTANSINE [Suspect]
     Active Substance: ADO-TRASTUZUMAB EMTANSINE
     Indication: HER2 positive breast cancer
     Dosage: MOST RECENT DOSE OF CAPACITABINE: 04/FEB/2019
     Route: 042
     Dates: start: 20181218, end: 20190204
  10. TRASTUZUMAB [Suspect]
     Active Substance: TRASTUZUMAB
     Indication: HER2 positive breast cancer
     Dosage: 600 MG, TIW
     Route: 058
     Dates: start: 20180918, end: 20181130
  11. XELODA [Suspect]
     Active Substance: CAPECITABINE
     Indication: HER2 positive breast cancer
     Dosage: 50 MG (0.25 A DAY)
     Route: 048
     Dates: start: 20190226
  12. XELODA [Suspect]
     Active Substance: CAPECITABINE
     Indication: HER2 positive breast cancer
  13. NAVELBINE [Suspect]
     Active Substance: VINORELBINE TARTRATE
     Indication: HER2 positive breast cancer
     Dosage: MOST RECENT DOSE OF VINORELBINE 30/NOV/2018
     Route: 042
     Dates: start: 20180918, end: 20181130
  14. NAVELBINE [Suspect]
     Active Substance: VINORELBINE TARTRATE
     Indication: HER2 positive breast cancer
  15. HERCEPTIN [Suspect]
     Active Substance: TRASTUZUMAB
     Indication: HER2 positive breast cancer
     Dosage: MOST RECENT DOSE 30/NOV/2018
     Route: 058
     Dates: start: 20180918, end: 20181130
  16. HERCEPTIN [Suspect]
     Active Substance: TRASTUZUMAB
     Indication: HER2 positive breast cancer
  17. KADCYLA [Suspect]
     Active Substance: ADO-TRASTUZUMAB EMTANSINE
     Indication: HER2 positive breast cancer
     Dosage: MOST RECENT DOSE OF CAPACITABINE: 04/FEB/2019
     Route: 042
     Dates: start: 20181218, end: 20190204
  18. KADCYLA [Suspect]
     Active Substance: ADO-TRASTUZUMAB EMTANSINE
     Indication: HER2 positive breast cancer
  19. EDOXABAN [Concomitant]
     Active Substance: EDOXABAN
     Indication: Product used for unknown indication
     Dosage: ONGOING = CHECKED
     Route: 065
     Dates: start: 20190828
  20. AMLODIPINE [Concomitant]
     Active Substance: AMLODIPINE BESYLATE
     Indication: Product used for unknown indication
     Dosage: ONGOING = CHECKED
     Route: 065
     Dates: start: 20190828
  21. FLUCLOXACILLIN [Concomitant]
     Active Substance: FLUCLOXACILLIN
     Indication: Product used for unknown indication
     Dosage: ONGOING = CHECKED
     Route: 065
     Dates: start: 20190122
  22. METAMIZOLE [Concomitant]
     Active Substance: METAMIZOLE
     Indication: Product used for unknown indication
     Dosage: ONGOING = CHECKED
     Route: 065
     Dates: start: 20190122
  23. TRAMADOL [Concomitant]
     Active Substance: TRAMADOL\TRAMADOL HYDROCHLORIDE
     Indication: Product used for unknown indication
     Dosage: ONGOING = CHECKED
     Route: 065
     Dates: start: 20190122
  24. METOCLOPRAMIDE [Concomitant]
     Active Substance: METOCLOPRAMIDE
     Indication: Product used for unknown indication
     Dosage: ONGOING = CHECKED
     Route: 065
     Dates: start: 20190719
  25. TAPENTADOL [Concomitant]
     Active Substance: TAPENTADOL
     Indication: Product used for unknown indication
     Dosage: UNK
     Route: 065
  26. TAPENTADOL [Concomitant]
     Active Substance: TAPENTADOL
     Dosage: ONGOING = CHECKED
     Route: 065
  27. TAPENTADOL [Concomitant]
     Active Substance: TAPENTADOL
     Dosage: ONGOING = CHECKED
     Route: 065
  28. TAPENTADOL [Concomitant]
     Active Substance: TAPENTADOL
     Dosage: ONGOING = CHECKED
     Route: 065
  29. TAPENTADOL [Concomitant]
     Active Substance: TAPENTADOL
     Dosage: ONGOING = CHECKED
     Route: 065
  30. TAPENTADOL [Concomitant]
     Active Substance: TAPENTADOL
     Dosage: ONGOING = CHECKED
     Route: 065
  31. PERINDOPRIL [Concomitant]
     Active Substance: PERINDOPRIL
     Indication: Product used for unknown indication
     Dosage: ONGOING = CHECKED
     Route: 065
     Dates: start: 20190828
  32. MORPHINE SULFATE [Concomitant]
     Active Substance: MORPHINE SULFATE
     Indication: Product used for unknown indication
     Dosage: ONGOING = CHECKED
     Route: 065
     Dates: start: 20190828
  33. FENTANYL [Concomitant]
     Active Substance: FENTANYL\FENTANYL CITRATE
     Indication: Product used for unknown indication
     Dosage: UNK
     Route: 065

REACTIONS (4)
  - Oedema peripheral [Recovered/Resolved]
  - Face oedema [Recovered/Resolved]
  - Subclavian vein thrombosis [Recovered/Resolved]
  - Paraneoplastic pleural effusion [Recovered/Resolved]

NARRATIVE: CASE EVENT DATE: 20190826
